FAERS Safety Report 5319286-4 (Version None)
Quarter: 2007Q2

REPORT INFORMATION
  Report Type: 
  Country: None (occurrence: None)
  Receive Date: 20070508
  Receipt Date: 20070426
  Transmission Date: 20071010
  Serious: Yes (Other)
  Sender: FDA-Public Use
  Company Number: DE-PFIZER INC-2007022069

PATIENT
  Sex: Female
  Weight: 78 kg

DRUGS (1)
  1. LYRICA [Suspect]
     Indication: PAIN
     Route: 048
     Dates: start: 20070125, end: 20070307

REACTIONS (1)
  - BLOOD POTASSIUM INCREASED [None]
